FAERS Safety Report 5735254-2 (Version None)
Quarter: 2008Q2

REPORT INFORMATION
  Report Type: 
  Country: None (occurrence: None)
  Receive Date: 20080508
  Receipt Date: 20080508
  Transmission Date: 20081010
  Serious: Yes (Hospitalization)
  Sender: FDA-Public Use
  Company Number: None

PATIENT
  Age: 33 Year
  Sex: Female
  Weight: 68 kg

DRUGS (1)
  1. REMICADE [Suspect]
     Indication: CROHN'S DISEASE
     Dosage: 340MG AS PER PROTOCOL IV DRIP
     Route: 041
     Dates: start: 20080417, end: 20080502

REACTIONS (8)
  - ABDOMINAL PAIN UPPER [None]
  - DIZZINESS [None]
  - DYSPNOEA [None]
  - FEELING ABNORMAL [None]
  - FLUSHING [None]
  - INFUSION RELATED REACTION [None]
  - NAUSEA [None]
  - TREMOR [None]
